FAERS Safety Report 9507691 (Version 1)
Quarter: 2013Q3

REPORT INFORMATION
  Report Type: Spontaneous
  Country: US (occurrence: None)
  Receive Date: 20130906
  Receipt Date: 20130906
  Transmission Date: 20140515
  Serious: No
  Sender: FDA-Public Use
  Company Number: None

PATIENT
  Age: 50 Year
  Sex: Male

DRUGS (3)
  1. ZYTIGA [Suspect]
     Indication: PROSTATE CANCER
     Dosage: 250MG 4 TABS DAILY ORAL
     Route: 048
     Dates: start: 20130621, end: 20130905
  2. HYDROCODONE/ACETAMINOPHEN [Concomitant]
  3. OXYCONTIN [Concomitant]

REACTIONS (2)
  - Disease progression [None]
  - Drug ineffective [None]
